FAERS Safety Report 5737949-3 (Version None)
Quarter: 2008Q2

REPORT INFORMATION
  Report Type: 
  Country: None (occurrence: None)
  Receive Date: 20080509
  Receipt Date: 20080422
  Transmission Date: 20081010
  Serious: Yes (Death)
  Sender: FDA-Public Use
  Company Number: 2008S1006771

PATIENT
  Age: 63 Year
  Sex: Male

DRUGS (8)
  1. CARBOPLATINE    (CARBOPLATIN) [Suspect]
     Indication: NEOPLASM MALIGNANT
     Dosage: INTRAVENOUS
     Route: 042
     Dates: start: 20080131, end: 20080131
  2. ETOPOSIDE [Suspect]
     Dosage: INTRAVENOUS
     Route: 042
     Dates: start: 20080131, end: 20080202
  3. COZAAR [Concomitant]
  4. ACTOS                    /01460201/ (PIOGLITAZONE) [Concomitant]
  5. JOSIR           (TAMSULOSIN HYDROCHLORIDF) [Concomitant]
  6. DIAMICRON       (GLICLAZIDE) [Concomitant]
  7. CORDARONE              /00133101/ (AMIODARONF) [Concomitant]
  8. PREVISCAN             /00789001/ (FLUINDIONE) [Concomitant]

REACTIONS (12)
  - ACUTE PULMONARY OEDEMA [None]
  - ALTERED STATE OF CONSCIOUSNESS [None]
  - CARDIAC FAILURE [None]
  - DILATATION VENTRICULAR [None]
  - DYSPNOEA [None]
  - EJECTION FRACTION DECREASED [None]
  - FLUID OVERLOAD [None]
  - MYOCARDIAL INFARCTION [None]
  - RESPIRATORY DISORDER [None]
  - RESPIRATORY RATE INCREASED [None]
  - SINUS ARRHYTHMIA [None]
  - SINUS TACHYCARDIA [None]
